FAERS Safety Report 21966012 (Version 4)
Quarter: 2023Q2

REPORT INFORMATION
  Report Type: Report from Study
  Country: GB (occurrence: GB)
  Receive Date: 20230208
  Receipt Date: 20230629
  Transmission Date: 20230721
  Serious: Yes (Hospitalization)
  Sender: FDA-Public Use
  Company Number: GB-AKCEA THERAPEUTICS, INC.-2023IS001105

PATIENT

DRUGS (2)
  1. TEGSEDI [Suspect]
     Active Substance: INOTERSEN SODIUM
     Indication: Amyloidosis
     Dosage: 284 MILLIGRAM, QW
     Route: 058
     Dates: start: 202207, end: 202301
  2. RAMIPRIL [Suspect]
     Active Substance: RAMIPRIL
     Indication: Product used for unknown indication
     Dosage: UNK
     Route: 065

REACTIONS (2)
  - Hypersensitivity [Recovering/Resolving]
  - Dyspnoea [Unknown]
